FAERS Safety Report 8573872-7 (Version None)
Quarter: 2012Q3

REPORT INFORMATION
  Report Type: 
  Country: None (occurrence: None)
  Receive Date: 20120806
  Receipt Date: 20120210
  Transmission Date: 20120928
  Serious: No
  Sender: FDA-Public Use
  Company Number: US-GLAXOSMITHKLINE-A0965525A

PATIENT
  Age: 74 Year
  Sex: Male

DRUGS (9)
  1. PREDNISONE [Concomitant]
  2. ACTOS [Concomitant]
  3. DILTIAZEM [Concomitant]
  4. ASPIRIN [Concomitant]
  5. ALLOPURINOL [Concomitant]
  6. LISINOPRIL [Concomitant]
  7. SPIRIVA [Concomitant]
  8. LIPITOR [Concomitant]
  9. FLUTICASONE PROPIONATE [Suspect]
     Indication: CHRONIC OBSTRUCTIVE PULMONARY DISEASE
     Dosage: 2PUFF TWICE PER DAY
     Route: 055
     Dates: start: 20120206

REACTIONS (2)
  - DYSURIA [None]
  - NERVOUSNESS [None]
